FAERS Safety Report 13775217 (Version 2)
Quarter: 2017Q3

REPORT INFORMATION
  Report Type: Spontaneous
  Country: IT (occurrence: IT)
  Receive Date: 20170720
  Receipt Date: 20170728
  Transmission Date: 20171127
  Serious: Yes (Hospitalization)
  Sender: FDA-Public Use
  Company Number: IT-TEVA-787510ACC

PATIENT
  Age: 16 Year
  Sex: Female
  Weight: 43 kg

DRUGS (3)
  1. QUETIAPINA TEVA ITALIA - 50 MG COMPRESSE A RILASCIO PROLUNGATO [Suspect]
     Active Substance: QUETIAPINE
     Indication: BIPOLAR DISORDER
     Dosage: 200 MILLIGRAM DAILY;
     Route: 048
     Dates: start: 20170330, end: 20170615
  2. FLUOXETINA RATIOPHARM - 20 MG COMPRESSE SOLUBILI-RATIOPHARM GMBH [Concomitant]
     Indication: PRODUCT USED FOR UNKNOWN INDICATION
  3. CARBOLITHIUM - 300 MG CAPSULE RIGIDE-TEVA ITALIA S.R.L. [Concomitant]
     Indication: PRODUCT USED FOR UNKNOWN INDICATION

REACTIONS (2)
  - Anaemia macrocytic [Recovering/Resolving]
  - Anaemia [Recovering/Resolving]

NARRATIVE: CASE EVENT DATE: 20170427
